FAERS Safety Report 4477980-1 (Version None)
Quarter: 2004Q4

REPORT INFORMATION
  Report Type: 
  Country: None (occurrence: None)
  Receive Date: 20041013
  Receipt Date: 20040927
  Transmission Date: 20050328
  Serious: Yes (Hospitalization)
  Sender: FDA-Public Use
  Company Number: 239553

PATIENT
  Age: 19 Year
  Sex: Female

DRUGS (1)
  1. NOVOSEVEN [Suspect]
     Indication: FACTOR VII DEFICIENCY
     Dosage: INTRAVENOUS
     Route: 042
     Dates: start: 20020101, end: 20040601

REACTIONS (5)
  - ANAPHYLACTIC REACTION [None]
  - BLOOD FIBRINOGEN DECREASED [None]
  - HYPOTENSION [None]
  - SWOLLEN TONGUE [None]
  - URTICARIA [None]
